FAERS Safety Report 8493277-7 (Version None)
Quarter: 2012Q3

REPORT INFORMATION
  Report Type: 
  Country: None (occurrence: None)
  Receive Date: 20120706
  Receipt Date: 20120627
  Transmission Date: 20120928
  Serious: Yes (Death, Hospitalization)
  Sender: FDA-Public Use
  Company Number: DE-CELGENEUS-062-21880-11033539

PATIENT
  Age: 65 Year
  Sex: Female
  Weight: 70 kg

DRUGS (6)
  1. TACROLIMUS [Concomitant]
     Route: 048
     Dates: start: 20110508, end: 20110513
  2. REVLIMID [Suspect]
     Indication: MULTIPLE MYELOMA
     Dosage: 10 MILLIGRAM
     Route: 048
     Dates: start: 20110228, end: 20110305
  3. METOLAZONE [Concomitant]
     Dosage: 5 MILLIGRAM
     Route: 048
     Dates: start: 20110505, end: 20110513
  4. SIMETICON [Concomitant]
     Dosage: 252 MILLIGRAM
     Route: 048
     Dates: start: 20110508, end: 20110513
  5. CALCIUMACETAT [Concomitant]
     Dosage: 3800 MILLIGRAM
     Route: 048
     Dates: start: 20110505, end: 20110513
  6. TACROLIMUS [Concomitant]
     Dosage: 7 MILLIGRAM
     Route: 048
     Dates: start: 20110505, end: 20110506

REACTIONS (2)
  - SEPSIS [None]
  - MUSCULAR WEAKNESS [None]
